FAERS Safety Report 10813666 (Version 1)
Quarter: 2015Q1

REPORT INFORMATION
  Report Type: Spontaneous
  Country: IT (occurrence: IT)
  Receive Date: 20150218
  Receipt Date: 20150218
  Transmission Date: 20150721
  Serious: Yes (Life-Threatening)
  Sender: FDA-Public Use
  Company Number: IT-TEVA-518662ISR

PATIENT
  Age: 72 Year
  Sex: Female

DRUGS (1)
  1. CLOPIDOGREL [Suspect]
     Active Substance: CLOPIDOGREL BISULFATE
     Indication: ISCHAEMIA
     Dosage: 75 MG DAILY
     Route: 048

REACTIONS (3)
  - Hyperhidrosis [Unknown]
  - Retching [Unknown]
  - Headache [Unknown]

NARRATIVE: CASE EVENT DATE: 20141007
